FAERS Safety Report 18164170 (Version 1)
Quarter: 2020Q3

REPORT INFORMATION
  Report Type: Spontaneous
  Country: US (occurrence: US)
  Receive Date: 20200818
  Receipt Date: 20200818
  Transmission Date: 20201103
  Serious: Yes (Death, Hospitalization, Other)
  Sender: FDA-Public Use
  Company Number: US-NAPPMUNDI-USA-2020-0152359

PATIENT
  Age: 32 Year
  Sex: Male

DRUGS (4)
  1. OXYCONTIN [Suspect]
     Active Substance: OXYCODONE HYDROCHLORIDE
     Indication: PRODUCT USED FOR UNKNOWN INDICATION
     Dosage: UNK
     Route: 048
     Dates: start: 2012, end: 20150805
  2. FENTANYL. [Suspect]
     Active Substance: FENTANYL
     Dosage: 25 MCG, Q2H
     Route: 042
  3. HEROIN [Suspect]
     Active Substance: DIAMORPHINE
     Indication: PRODUCT USED FOR UNKNOWN INDICATION
     Dosage: UNKNOWN
     Route: 042
  4. FENTANYL. [Suspect]
     Active Substance: FENTANYL
     Indication: PRODUCT USED FOR UNKNOWN INDICATION
     Dosage: UNKNOWN
     Route: 065

REACTIONS (44)
  - Emotional distress [Unknown]
  - Pulseless electrical activity [Unknown]
  - Subarachnoid haemorrhage [Unknown]
  - Renal tubular necrosis [Unknown]
  - Brain oedema [Unknown]
  - Coma [Unknown]
  - Hypoventilation [Unknown]
  - Malaise [Unknown]
  - Drug abuse [Unknown]
  - Road traffic accident [Unknown]
  - Cardio-respiratory arrest [Unknown]
  - Seizure [Unknown]
  - Hypotension [Unknown]
  - Respiratory acidosis [Unknown]
  - Paralysis [Unknown]
  - Choking [Unknown]
  - Sudden onset of sleep [Unknown]
  - Constipation [Unknown]
  - Hyperglycaemia [Unknown]
  - Lung infiltration [Unknown]
  - Needle track marks [Unknown]
  - Pupillary reflex impaired [Unknown]
  - Acute kidney injury [Unknown]
  - Mitral valve incompetence [Unknown]
  - Mental disorder [Unknown]
  - Quality of life decreased [Unknown]
  - Overdose [Fatal]
  - Hospitalisation [Unknown]
  - Hypoxic-ischaemic encephalopathy [Unknown]
  - Tremor [Unknown]
  - Sinus tachycardia [Unknown]
  - Transaminases increased [Unknown]
  - Drug dependence [Unknown]
  - Toxicity to various agents [Fatal]
  - Rehabilitation therapy [Unknown]
  - Electrocardiogram ST segment abnormal [Unknown]
  - Ischaemic hepatitis [Unknown]
  - Cerebral ischaemia [Unknown]
  - Pulmonary oedema [Unknown]
  - Brain death [Unknown]
  - Insomnia [Unknown]
  - Loss of consciousness [Unknown]
  - Renal failure [Unknown]
  - Abdominal distension [Unknown]

NARRATIVE: CASE EVENT DATE: 20150803
